FAERS Safety Report 14514413 (Version 5)
Quarter: 2018Q2

REPORT INFORMATION
  Report Type: Spontaneous
  Country: AT (occurrence: AT)
  Receive Date: 20180209
  Receipt Date: 20180409
  Transmission Date: 20180711
  Serious: Yes (Other)
  Sender: FDA-Public Use
  Company Number: AT-SA-2018SA034224

PATIENT
  Age: 38 Year
  Sex: Male

DRUGS (11)
  1. XEPLION [Suspect]
     Active Substance: PALIPERIDONE PALMITATE
     Indication: SCHIZOPHRENIA
     Route: 030
     Dates: start: 20170112
  2. DEPAKINE [Suspect]
     Active Substance: VALPROATE SODIUM
     Route: 065
     Dates: start: 20161123
  3. XEPLION [Suspect]
     Active Substance: PALIPERIDONE PALMITATE
     Indication: SCHIZOPHRENIA
     Route: 030
     Dates: end: 20161212
  4. ABILIFY [Suspect]
     Active Substance: ARIPIPRAZOLE
     Route: 048
  5. LEPONEX [Suspect]
     Active Substance: CLOZAPINE
     Route: 048
     Dates: start: 20170125, end: 20170129
  6. AKINETON [Suspect]
     Active Substance: BIPERIDEN HYDROCHLORIDE
     Route: 048
  7. LEPONEX [Suspect]
     Active Substance: CLOZAPINE
     Dosage: SLOWLY TAPERING TO 0 MG
     Route: 065
     Dates: start: 20170109, end: 20170112
  8. XYZALL [Suspect]
     Active Substance: LEVOCETIRIZINE DIHYDROCHLORIDE
     Route: 048
  9. ABILIFY [Suspect]
     Active Substance: ARIPIPRAZOLE
     Route: 065
  10. LEPONEX [Suspect]
     Active Substance: CLOZAPINE
     Dosage: 25-100 MG
     Route: 065
  11. LEPONEX [Suspect]
     Active Substance: CLOZAPINE
     Dosage: 100-125 MG; 25 TO 125 MG WITHIN 5 DAYS
     Route: 065

REACTIONS (2)
  - Parkinsonism [Recovered/Resolved]
  - Sedation [Recovered/Resolved]

NARRATIVE: CASE EVENT DATE: 20170117
